FAERS Safety Report 16204036 (Version 2)
Quarter: 2019Q3

REPORT INFORMATION
  Report Type: Spontaneous
  Country: US (occurrence: US)
  Receive Date: 20190416
  Receipt Date: 20190812
  Transmission Date: 20191004
  Serious: No
  Sender: FDA-Public Use
  Company Number: US-PFIZER INC-2019160540

PATIENT
  Age: 47 Year
  Sex: Female
  Weight: 86.17 kg

DRUGS (1)
  1. EUCRISA [Suspect]
     Active Substance: CRISABOROLE
     Indication: DERMATITIS ATOPIC
     Dosage: 1 DF, 2X/DAY (1 APPLICATION TOPICALLY BID)
     Route: 061
     Dates: start: 20190319, end: 20190326

REACTIONS (2)
  - Skin hyperpigmentation [Recovering/Resolving]
  - Dermatitis atopic [Recovered/Resolved]

NARRATIVE: CASE EVENT DATE: 201903
